FAERS Safety Report 11438073 (Version 1)
Quarter: 2015Q3

REPORT INFORMATION
  Report Type: Spontaneous
  Country: DE (occurrence: DE)
  Receive Date: 20150831
  Receipt Date: 20150831
  Transmission Date: 20151125
  Serious: Yes (Other)
  Sender: FDA-Public Use
  Company Number: ALCN2015DE004524

PATIENT
  Age: 70 Year
  Sex: Female

DRUGS (9)
  1. FLOXAL [Concomitant]
     Active Substance: OFLOXACIN
     Indication: PRODUCT USED FOR UNKNOWN INDICATION
     Dosage: 1 DF, TID
     Route: 065
     Dates: start: 20150629
  2. HYLO PROTECT [Concomitant]
     Indication: PRODUCT USED FOR UNKNOWN INDICATION
     Dosage: MULTIPLE
     Route: 065
     Dates: start: 20150625
  3. VIGAMOX [Suspect]
     Active Substance: MOXIFLOXACIN HYDROCHLORIDE
     Indication: EYE INFECTION
     Dosage: 1 DF, QH
     Route: 047
     Dates: start: 201506
  4. VIGAMOX [Suspect]
     Active Substance: MOXIFLOXACIN HYDROCHLORIDE
  5. VIGAMOX [Suspect]
     Active Substance: MOXIFLOXACIN HYDROCHLORIDE
     Dosage: UNK, QD
     Route: 047
  6. TOBRADEX [Concomitant]
     Active Substance: DEXAMETHASONE\TOBRAMYCIN
     Indication: PRODUCT USED FOR UNKNOWN INDICATION
     Dosage: UNK UNK, TID
     Route: 065
     Dates: start: 20150625
  7. PREDNISOLONE. [Concomitant]
     Active Substance: PREDNISOLONE
     Indication: PRODUCT USED FOR UNKNOWN INDICATION
     Dosage: SCHEME
     Route: 065
     Dates: start: 20150530, end: 20150610
  8. XALACOM [Concomitant]
     Active Substance: LATANOPROST\TIMOLOL MALEATE
     Indication: GLAUCOMA
     Dosage: UNK UNK, QD
     Route: 065
  9. DOXY ^CT-ARZNEIMITTEL^ [Concomitant]
     Indication: BRONCHITIS
     Dosage: 1 DF, QD
     Route: 065
     Dates: start: 20150530, end: 20150610

REACTIONS (3)
  - Visual acuity reduced transiently [Recovered/Resolved]
  - Off label use [Unknown]
  - Vision blurred [Recovered/Resolved with Sequelae]

NARRATIVE: CASE EVENT DATE: 201506
